FAERS Safety Report 16369630 (Version 1)
Quarter: 2019Q2

REPORT INFORMATION
  Report Type: Spontaneous
  Country: GB (occurrence: GB)
  Receive Date: 20190530
  Receipt Date: 20190530
  Transmission Date: 20190711
  Serious: Yes (Other)
  Sender: FDA-Public Use
  Company Number: GB-TEVA-164274ISR

PATIENT
  Sex: Female

DRUGS (2)
  1. GLUCOSE [Suspect]
     Active Substance: DEXTROSE
     Dosage: 595 MG IN 58.5 MLL
     Dates: start: 20071019, end: 20071019
  2. CARBOPLATIN. [Suspect]
     Active Substance: CARBOPLATIN
     Dates: start: 20071019, end: 20071019

REACTIONS (2)
  - Accidental exposure to product [Not Recovered/Not Resolved]
  - Scar [Not Recovered/Not Resolved]

NARRATIVE: CASE EVENT DATE: 20071019
